FAERS Safety Report 6473199-3 (Version None)
Quarter: 2009Q4

REPORT INFORMATION
  Report Type: 
  Country: None (occurrence: None)
  Receive Date: 20091204
  Receipt Date: 20080911
  Transmission Date: 20100525
  Serious: Yes (Hospitalization)
  Sender: FDA-Public Use
  Company Number: JP-ELI_LILLY_AND_COMPANY-JP200807000002

PATIENT
  Sex: Female
  Weight: 52 kg

DRUGS (14)
  1. PEMETREXED [Suspect]
     Indication: PLEURAL MESOTHELIOMA MALIGNANT
     Dosage: 500 MG/M2, OTHER
     Route: 042
     Dates: start: 20080116, end: 20080116
  2. PEMETREXED [Suspect]
     Dosage: 375 MG/M2, OTHER
     Route: 042
     Dates: start: 20080326
  3. CISPLATIN [Suspect]
     Indication: PLEURAL MESOTHELIOMA MALIGNANT
     Dosage: 75 MG/M2, OTHER
     Route: 042
     Dates: start: 20080116, end: 20080116
  4. CISPLATIN [Suspect]
     Dosage: 56.25 MG/M2, OTHER
     Route: 042
     Dates: start: 20080326
  5. PANVITAN [Concomitant]
     Dosage: 1 G, DAILY (1/D)
     Route: 048
     Dates: start: 20080109
  6. METHYCOBAL [Concomitant]
     Dosage: 1 MG, OTHER
     Route: 030
     Dates: start: 20080109, end: 20080819
  7. SOLANAX [Concomitant]
     Indication: INSOMNIA
     Dosage: 0.4 MG, DAILY (1/D)
     Route: 048
  8. LASIX [Concomitant]
     Indication: PROPHYLAXIS
     Dosage: 20 MG, DAILY (1/D)
     Route: 042
     Dates: start: 20080116, end: 20080828
  9. SEROTONE [Concomitant]
     Indication: PROPHYLAXIS
     Dosage: 10 MG, DAILY (1/D)
     Route: 042
     Dates: start: 20080116, end: 20080116
  10. SEROTONE [Concomitant]
     Dosage: 10 MG, DAILY (1/D)
     Route: 042
     Dates: start: 20080326, end: 20080830
  11. ORGADRONE [Concomitant]
     Indication: PROPHYLAXIS
     Dosage: 3.8 MG, DAILY (1/D)
     Route: 042
     Dates: start: 20080116, end: 20080116
  12. ORGADRONE [Concomitant]
     Dosage: 3.8 MG, DAILY (1/D)
     Route: 042
     Dates: start: 20080326, end: 20080401
  13. GASTER [Concomitant]
     Indication: PROPHYLAXIS
     Dosage: 20 MG, UNK
     Route: 042
     Dates: start: 20080116, end: 20080117
  14. GASTER [Concomitant]
     Dosage: 20 MG, DAILY (1/D)
     Route: 042
     Dates: start: 20080326, end: 20080831

REACTIONS (7)
  - ANAEMIA [None]
  - DECREASED APPETITE [None]
  - DIARRHOEA [None]
  - MALAISE [None]
  - NAUSEA [None]
  - PLEURISY [None]
  - VOMITING [None]
